FAERS Safety Report 8800685 (Version 1)
Quarter: 2012Q4

REPORT INFORMATION
  Report Type: 
  Country: US (occurrence: US)
  Receive Date: 20120921
  Receipt Date: 20120921
  Transmission Date: 20130627
  Serious: Yes (Death)
  Sender: FDA-Public Use
  Company Number: US-ROCHE-1110805

PATIENT
  Sex: Female

DRUGS (13)
  1. AVASTIN [Suspect]
     Indication: OVARIAN CANCER
     Route: 065
     Dates: start: 20051220
  2. AVASTIN [Suspect]
     Route: 065
     Dates: start: 20060103
  3. AVASTIN [Suspect]
     Route: 065
     Dates: start: 20060111
  4. AVASTIN [Suspect]
     Route: 065
     Dates: start: 20060118
  5. AVASTIN [Suspect]
     Route: 065
     Dates: start: 20060125
  6. AVASTIN [Suspect]
     Route: 065
     Dates: start: 20060208
  7. AVASTIN [Suspect]
     Route: 065
     Dates: start: 20060222
  8. AVASTIN [Suspect]
     Route: 065
     Dates: start: 20060307
  9. AVASTIN [Suspect]
     Route: 065
     Dates: start: 20060321
  10. AVASTIN [Suspect]
     Route: 065
     Dates: start: 20060329
  11. AVASTIN [Suspect]
     Route: 065
     Dates: start: 20060412
  12. AVASTIN [Suspect]
     Route: 065
     Dates: start: 20060419
  13. AVASTIN [Suspect]
     Route: 065
     Dates: start: 20060426

REACTIONS (1)
  - Death [Fatal]
